FAERS Safety Report 4599021-8 (Version None)
Quarter: 2005Q1

REPORT INFORMATION
  Report Type: 
  Country: None (occurrence: None)
  Receive Date: 20050302
  Receipt Date: 20050223
  Transmission Date: 20050727
  Serious: Yes (Life-Threatening, Hospitalization)
  Sender: FDA-Public Use
  Company Number: 200510060BCA

PATIENT
  Age: 73 Year
  Sex: Male

DRUGS (10)
  1. MOXIFLOXACIN HCL [Suspect]
     Indication: PNEUMONIA
     Dosage: 400 MG, QD, ORAL
     Route: 048
     Dates: start: 20050201
  2. LOSEC [Concomitant]
  3. MULTI-VITAMIN [Concomitant]
  4. DOCUSATE SODIUM [Concomitant]
  5. AMIODARONE [Concomitant]
  6. LEVOTHYROXINE [Concomitant]
  7. SPIRIVA [Concomitant]
  8. ADVAIR DISKUS 100/50 [Concomitant]
  9. DIDROCAL [Concomitant]
  10. SENOKOT [Concomitant]

REACTIONS (1)
  - HYPOGLYCAEMIC COMA [None]
